FAERS Safety Report 9527001 (Version 3)
Quarter: 2013Q4

REPORT INFORMATION
  Report Type: Spontaneous
  Country: IT (occurrence: IT)
  Receive Date: 20130916
  Receipt Date: 20131112
  Transmission Date: 20140711
  Serious: Yes (Death, Hospitalization, Other)
  Sender: FDA-Public Use
  Company Number: IT-BAXTER-2013BAX035507

PATIENT
  Age: 70 Year
  Sex: Male

DRUGS (16)
  1. ENDOXAN BAXTER [Suspect]
     Indication: B-CELL LYMPHOMA
     Route: 042
     Dates: start: 20130614
  2. ENDOXAN BAXTER [Suspect]
     Route: 042
     Dates: start: 20130705
  3. ENDOXAN BAXTER [Suspect]
     Route: 042
     Dates: start: 20130726
  4. MABTHERA [Suspect]
     Indication: B-CELL LYMPHOMA
     Route: 042
     Dates: start: 20130621, end: 20130726
  5. MABTHERA [Suspect]
     Route: 042
     Dates: start: 20130621, end: 20130726
  6. MABTHERA [Suspect]
     Route: 042
     Dates: start: 20130705
  7. MABTHERA [Suspect]
     Route: 042
     Dates: start: 20130726
  8. VINCRISTINE PFIZER [Suspect]
     Indication: B-CELL LYMPHOMA
     Route: 042
     Dates: start: 20130614
  9. VINCRISTINE PFIZER [Suspect]
     Route: 042
     Dates: start: 20130705
  10. VINCRISTINE PFIZER [Suspect]
     Route: 042
     Dates: start: 20130726
  11. OMEPRAZOLE [Concomitant]
     Indication: PRODUCT USED FOR UNKNOWN INDICATION
     Route: 048
  12. PARACETAMOL [Concomitant]
     Indication: PRODUCT USED FOR UNKNOWN INDICATION
     Route: 048
  13. LEVOFLOXACIN [Concomitant]
     Indication: PRODUCT USED FOR UNKNOWN INDICATION
     Route: 042
     Dates: start: 20130812, end: 20130816
  14. TARGIN [Concomitant]
     Indication: PRODUCT USED FOR UNKNOWN INDICATION
     Route: 048
     Dates: start: 20130501, end: 20130816
  15. LYRICA [Concomitant]
     Indication: PRODUCT USED FOR UNKNOWN INDICATION
     Route: 048
  16. TARGET [Concomitant]
     Indication: PRODUCT USED FOR UNKNOWN INDICATION
     Route: 048

REACTIONS (4)
  - Pleural effusion [Fatal]
  - Pneumonia [Fatal]
  - Neutropenia [Unknown]
  - Pyrexia [Recovered/Resolved]
